FAERS Safety Report 7741861-8 (Version None)
Quarter: 2011Q3

REPORT INFORMATION
  Report Type: 
  Country: None (occurrence: None)
  Receive Date: 20110912
  Receipt Date: 20110831
  Transmission Date: 20111222
  Serious: Yes (Hospitalization)
  Sender: FDA-Public Use
  Company Number: BR-JNJFOC-20110903088

PATIENT
  Age: 51 Year
  Sex: Female
  Weight: 55.1 kg

DRUGS (6)
  1. CARBAMAZEPINE [Suspect]
     Indication: EPILEPSY
     Route: 048
     Dates: start: 20050101
  2. GOLIMUMAB [Suspect]
     Indication: RHEUMATOID ARTHRITIS
     Route: 058
     Dates: start: 20101125, end: 20110726
  3. PHENOBARBITAL TAB [Suspect]
     Indication: EPILEPSY
     Route: 048
     Dates: start: 19950101
  4. METHOTREXATE [Concomitant]
     Indication: RHEUMATOID ARTHRITIS
     Route: 048
     Dates: start: 20070101
  5. FOLIC ACID [Concomitant]
     Indication: RHEUMATOID ARTHRITIS
     Route: 048
     Dates: start: 19860101
  6. LEFLUNOMIDE [Concomitant]
     Indication: RHEUMATOID ARTHRITIS
     Route: 048
     Dates: start: 20030101

REACTIONS (2)
  - FEBRILE NEUTROPENIA [None]
  - SEPSIS [None]
